FAERS Safety Report 5133664-8 (Version None)
Quarter: 2006Q4

REPORT INFORMATION
  Report Type: 
  Country: None (occurrence: None)
  Receive Date: 20061024
  Receipt Date: 20061011
  Transmission Date: 20070319
  Serious: Yes (Other)
  Sender: FDA-Public Use
  Company Number: PHEH2006US12863

PATIENT

DRUGS (1)
  1. ZOMETA [Suspect]

REACTIONS (4)
  - BONE DISORDER [None]
  - BONE LESION [None]
  - OSTEONECROSIS [None]
  - PAIN IN JAW [None]
